FAERS Safety Report 9126566 (Version 1)
Quarter: 2013Q1

REPORT INFORMATION
  Report Type: Spontaneous
  Country: US (occurrence: US)
  Receive Date: 20130117
  Receipt Date: 20130117
  Transmission Date: 20140127
  Serious: Yes (Hospitalization)
  Sender: FDA-Public Use
  Company Number: US-BAYER-2013-005091

PATIENT
  Age: 36 Year
  Sex: Female
  Weight: 81.63 kg

DRUGS (8)
  1. YASMIN [Suspect]
  2. LISINOPRIL [Concomitant]
     Dosage: 20 MG, UNK
     Route: 048
     Dates: start: 20100514
  3. CLINDAMYCIN [Concomitant]
     Dosage: UNK
     Route: 061
     Dates: start: 20100618
  4. TRETINOIN [Concomitant]
     Dosage: 0.05 %, UNK
     Route: 061
     Dates: start: 20100618
  5. IBUPROFEN [Concomitant]
     Dosage: 800 MG, UNK
     Route: 048
     Dates: start: 20100707
  6. NAPROSYN [Concomitant]
     Dosage: UNK
     Route: 048
     Dates: start: 20100707
  7. KETOROLAC [Concomitant]
     Dosage: 30 MG/ML, UNK
     Dates: start: 20100708
  8. ACYCLOVIR [ACICLOVIR] [Concomitant]
     Dosage: 200 MG, UNK
     Route: 048
     Dates: start: 20100709

REACTIONS (1)
  - Pulmonary embolism [None]
